FAERS Safety Report 25178000 (Version 2)
Quarter: 2025Q2

REPORT INFORMATION
  Report Type: Spontaneous
  Country: CA (occurrence: None)
  Receive Date: 20250409
  Receipt Date: 20250411
  Transmission Date: 20250716
  Serious: Yes (Other)
  Sender: ORION
  Company Number: CA-PFIZER INC-202500072856

PATIENT
  Age: 12 Year
  Sex: Female

DRUGS (3)
  1. METHOTREXATE [Suspect]
     Active Substance: METHOTREXATE
     Indication: Product used for unknown indication
  2. METHOTREXATE [Suspect]
     Active Substance: METHOTREXATE
  3. GRAVOL [Concomitant]
     Active Substance: DIMENHYDRINATE

REACTIONS (2)
  - Uveitis [Unknown]
  - Gastrointestinal disorder [Unknown]
